FAERS Safety Report 5924798-6 (Version None)
Quarter: 2008Q4

REPORT INFORMATION
  Report Type: 
  Country: None (occurrence: None)
  Receive Date: 20081017
  Receipt Date: 20081017
  Transmission Date: 20090506
  Serious: Yes (Other)
  Sender: FDA-Public Use
  Company Number: None

PATIENT

DRUGS (5)
  1. TYLENOL W/ CODEINE NO. 3 [Suspect]
     Indication: INFLAMMATION
     Dosage: 1-2 NEEDED MEDICINE 4-6 HRS-1-2 A DAY PO
     Route: 048
     Dates: start: 20030615, end: 20081008
  2. TYLENOL W/ CODEINE NO. 3 [Suspect]
     Indication: NEUROPATHY PERIPHERAL
     Dosage: 1-2 NEEDED MEDICINE 4-6 HRS-1-2 A DAY PO
     Route: 048
     Dates: start: 20030615, end: 20081008
  3. CLONAZEPAM [Suspect]
     Indication: PAIN
     Dosage: 1-2 NEEDED MEDICINE DAILY PO
     Route: 048
     Dates: start: 20030615, end: 20081009
  4. CLONAZEPAM [Suspect]
     Indication: POOR QUALITY SLEEP
     Dosage: 1-2 NEEDED MEDICINE DAILY PO
     Route: 048
     Dates: start: 20030615, end: 20081009
  5. CLONAZEPAM [Suspect]
     Indication: RESTLESS LEGS SYNDROME
     Dosage: 1-2 NEEDED MEDICINE DAILY PO
     Route: 048
     Dates: start: 20030615, end: 20081009

REACTIONS (2)
  - DRUG DISPENSING ERROR [None]
  - MEDICATION ERROR [None]
